FAERS Safety Report 18454285 (Version 1)
Quarter: 2020Q4

REPORT INFORMATION
  Report Type: Report from Study
  Country: PT (occurrence: PT)
  Receive Date: 20201102
  Receipt Date: 20201102
  Transmission Date: 20210114
  Serious: Yes (Other)
  Sender: FDA-Public Use
  Company Number: PT-TAKEDA-PT201850616

PATIENT

DRUGS (9)
  1. ADVATE [Suspect]
     Active Substance: ANTIHEMOPHILIC FACTOR, HUMAN RECOMBINANT
     Dosage: 7500 INTERNATIONAL UNIT, 3X A WEEK
     Route: 065
     Dates: start: 20191014, end: 20191014
  2. ADVATE [Suspect]
     Active Substance: ANTIHEMOPHILIC FACTOR, HUMAN RECOMBINANT
     Dosage: 7500 INTERNATIONAL UNIT, 3X A WEEK
     Route: 065
     Dates: start: 20191014, end: 20191014
  3. ADVATE [Suspect]
     Active Substance: ANTIHEMOPHILIC FACTOR, HUMAN RECOMBINANT
     Dosage: 7500 INTERNATIONAL UNIT, 3X A WEEK
     Route: 065
     Dates: start: 20180314
  4. ADVATE [Suspect]
     Active Substance: ANTIHEMOPHILIC FACTOR, HUMAN RECOMBINANT
     Dosage: 7500 INTERNATIONAL UNIT, 3X A WEEK
     Route: 065
     Dates: start: 20191014, end: 20191014
  5. ADVATE [Suspect]
     Active Substance: ANTIHEMOPHILIC FACTOR, HUMAN RECOMBINANT
     Indication: FACTOR VIII DEFICIENCY
     Dosage: 1000 INTERNATIONAL UNIT, 3/4X A WEEK
     Route: 065
     Dates: start: 20180212
  6. ADVATE [Suspect]
     Active Substance: ANTIHEMOPHILIC FACTOR, HUMAN RECOMBINANT
     Indication: FACTOR VIII DEFICIENCY
     Dosage: 1000 INTERNATIONAL UNIT, 3/4X A WEEK
     Route: 065
     Dates: start: 20180212
  7. ADVATE [Suspect]
     Active Substance: ANTIHEMOPHILIC FACTOR, HUMAN RECOMBINANT
     Dosage: 7500 INTERNATIONAL UNIT, 3X A WEEK
     Route: 065
     Dates: start: 20180314
  8. ADVATE [Suspect]
     Active Substance: ANTIHEMOPHILIC FACTOR, HUMAN RECOMBINANT
     Indication: FACTOR VIII DEFICIENCY
     Dosage: 1000 INTERNATIONAL UNIT, 3/4X A WEEK
     Route: 065
     Dates: start: 20180212
  9. ADVATE [Suspect]
     Active Substance: ANTIHEMOPHILIC FACTOR, HUMAN RECOMBINANT
     Dosage: 7500 INTERNATIONAL UNIT, 3X A WEEK
     Route: 065
     Dates: start: 20180314

REACTIONS (2)
  - Contusion [Recovered/Resolved]
  - Fall [Recovered/Resolved]

NARRATIVE: CASE EVENT DATE: 20181014
